FAERS Safety Report 16744546 (Version 2)
Quarter: 2020Q1

REPORT INFORMATION
  Report Type: Spontaneous
  Country: US (occurrence: US)
  Receive Date: 20190827
  Receipt Date: 20200205
  Transmission Date: 20200409
  Serious: Yes (Hospitalization, Other)
  Sender: FDA-Public Use
  Company Number: US-PROCTER_AND_GAMBLE-GS19088136

PATIENT
  Age: 53 Year
  Sex: Male
  Weight: 106.58 kg

DRUGS (4)
  1. METAMUCIL THERAPY FOR REGULARITY [Suspect]
     Active Substance: PSYLLIUM HUSK
     Dosage: 2 TSP, 1 /DAY
     Route: 048
     Dates: start: 20190813, end: 20190814
  2. METAMUCIL THERAPY FOR REGULARITY [Suspect]
     Active Substance: PSYLLIUM HUSK
     Indication: FAECES SOFT
     Dosage: 3 TSP, 1 /DAY
     Route: 048
     Dates: start: 20190813, end: 20190814
  3. VENLAFAXINE [Concomitant]
     Active Substance: VENLAFAXINE HYDROCHLORIDE
     Indication: PAIN
     Dosage: 75 MILLIGRAM 1 X
  4. LISINOPRIL. [Concomitant]
     Active Substance: LISINOPRIL
     Indication: BLOOD PRESSURE MANAGEMENT
     Dosage: 20 MILLIGRAM 1 X

REACTIONS (7)
  - Vomiting [Recovered/Resolved]
  - Incorrect dose administered [Unknown]
  - Intestinal obstruction [Recovered/Resolved]
  - Abdominal discomfort [Recovered/Resolved]
  - Off label use [Unknown]
  - Gastrointestinal pain [Recovered/Resolved]
  - Product use in unapproved indication [Unknown]

NARRATIVE: CASE EVENT DATE: 20190814
